FAERS Safety Report 7781945-1 (Version None)
Quarter: 2011Q3

REPORT INFORMATION
  Report Type: 
  Country: None (occurrence: None)
  Receive Date: 20110927
  Receipt Date: 20110307
  Transmission Date: 20111222
  Serious: No
  Sender: FDA-Public Use
  Company Number: US-BAYER-2011-021688

PATIENT
  Age: 48 Year
  Sex: Female
  Weight: 91.156 kg

DRUGS (5)
  1. PRAVASTATIN [Concomitant]
  2. BENALAPRIL [Concomitant]
  3. ULTRAVIST 150 [Suspect]
     Indication: COMPUTERISED TOMOGRAM
     Dosage: 100 ML, ONCE
     Route: 042
     Dates: start: 20110307, end: 20110307
  4. ACTOS [Concomitant]
  5. PRILOSEC [Concomitant]

REACTIONS (3)
  - NASAL CONGESTION [None]
  - SNEEZING [None]
  - COUGH [None]
